FAERS Safety Report 8401392-9 (Version None)
Quarter: 2012Q2

REPORT INFORMATION
  Report Type: 
  Country: None (occurrence: None)
  Receive Date: 20120601
  Receipt Date: 20120523
  Transmission Date: 20120825
  Serious: Yes (Hospitalization, Other)
  Sender: FDA-Public Use
  Company Number: CA-JNJFOC-20110405843

PATIENT
  Sex: Female
  Weight: 68 kg

DRUGS (6)
  1. REMICADE [Suspect]
     Dosage: 21ST INFUSION
     Route: 042
     Dates: start: 20111208
  2. REMICADE [Suspect]
     Route: 042
     Dates: start: 20120326
  3. REMICADE [Suspect]
     Indication: CROHN'S DISEASE
     Dosage: 16TH INFUSION
     Route: 042
     Dates: start: 20110208
  4. REMICADE [Suspect]
     Route: 042
     Dates: start: 20120523
  5. REMICADE [Suspect]
     Route: 042
     Dates: start: 20090101
  6. IRON [Concomitant]
     Route: 065

REACTIONS (7)
  - ERYTHEMA [None]
  - FLUSHING [None]
  - CAESAREAN SECTION [None]
  - HEADACHE [None]
  - MATERNAL EXPOSURE DURING PREGNANCY [None]
  - INFUSION RELATED REACTION [None]
  - CHILLS [None]
